FAERS Safety Report 20435503 (Version 14)
Quarter: 2023Q1

REPORT INFORMATION
  Report Type: Report from Study
  Country: US (occurrence: US)
  Receive Date: 20220206
  Receipt Date: 20230203
  Transmission Date: 20230417
  Serious: Yes (Other)
  Sender: FDA-Public Use
  Company Number: US-NOVARTISTESTPH-NVSC2022US024986

PATIENT
  Age: 78 Year
  Sex: Female

DRUGS (2)
  1. KISQALI FEMARA CO-PACK [Suspect]
     Active Substance: LETROZOLE\RIBOCICLIB
     Indication: Breast cancer
     Dosage: 200 MG, QD
     Route: 048
     Dates: start: 202107
  2. KISQALI FEMARA CO-PACK [Suspect]
     Active Substance: LETROZOLE\RIBOCICLIB
     Dosage: 600 MG
     Route: 048
     Dates: start: 202109

REACTIONS (10)
  - Abdominal discomfort [Unknown]
  - Breast cancer [Unknown]
  - Malignant neoplasm progression [Unknown]
  - Laboratory test abnormal [Unknown]
  - Tumour marker increased [Unknown]
  - Nail ridging [Unknown]
  - Alopecia [Unknown]
  - Weight increased [Unknown]
  - Renal function test abnormal [Unknown]
  - Illness [Unknown]

NARRATIVE: CASE EVENT DATE: 20220211
